FAERS Safety Report 5202621-5 (Version None)
Quarter: 2007Q1

REPORT INFORMATION
  Report Type: 
  Country: None (occurrence: None)
  Receive Date: 20070109
  Receipt Date: 20070103
  Transmission Date: 20070707
  Serious: Yes (Other)
  Sender: FDA-Public Use
  Company Number: US-PFIZER INC-2006150092

PATIENT
  Sex: Female
  Weight: 52.2 kg

DRUGS (8)
  1. LIPITOR [Suspect]
     Indication: BLOOD CHOLESTEROL INCREASED
  2. PLAVIX [Concomitant]
  3. ASPIRIN [Concomitant]
  4. ZETIA [Concomitant]
  5. METOPROLOL SUCCINATE [Concomitant]
  6. KLONOPIN [Concomitant]
  7. OXYCODONE HCL [Concomitant]
  8. ULTRACET [Concomitant]

REACTIONS (4)
  - HIGH DENSITY LIPOPROTEIN [None]
  - MUSCLE DISORDER [None]
  - MUSCULOSKELETAL CHEST PAIN [None]
  - RASH [None]
